FAERS Safety Report 9473051 (Version 1)
Quarter: 2013Q3

REPORT INFORMATION
  Report Type: Spontaneous
  Country: US (occurrence: US)
  Receive Date: 20130823
  Receipt Date: 20130823
  Transmission Date: 20140515
  Serious: Yes (Hospitalization)
  Sender: FDA-Public Use
  Company Number: US-BRISTOL-MYERS SQUIBB COMPANY-17375973

PATIENT
  Age: 59 Year
  Sex: Female
  Weight: 72.56 kg

DRUGS (5)
  1. SPRYCEL [Suspect]
     Indication: CHRONIC MYELOID LEUKAEMIA
     Dosage: STOPPED ON SEP2011 AND RESTARTED 50MG
     Dates: start: 201102
  2. ADVAIR [Concomitant]
     Dosage: 1 DF = 100/50 UNITS NOS
  3. ZOLOFT [Concomitant]
  4. SIMVASTATIN [Concomitant]
  5. AMBIEN [Concomitant]

REACTIONS (3)
  - Pleural effusion [Recovered/Resolved]
  - Laryngitis [Unknown]
  - Sinus headache [Unknown]
